FAERS Safety Report 17160211 (Version 11)
Quarter: 2020Q3

REPORT INFORMATION
  Report Type: Report from Study
  Country: CA (occurrence: CA)
  Receive Date: 20191216
  Receipt Date: 20200918
  Transmission Date: 20201102
  Serious: Yes (Hospitalization)
  Sender: FDA-Public Use
  Company Number: CA-EISAI MEDICAL RESEARCH-EC-2019-067106

PATIENT
  Age: 64 Year
  Sex: Female
  Weight: 83.8 kg

DRUGS (19)
  1. RESTORALAX [Concomitant]
     Active Substance: POLYETHYLENE GLYCOL 3350
     Dates: start: 201701
  2. TYLENOL EXTRA STRENGTH [Concomitant]
     Active Substance: ACETAMINOPHEN
     Dates: start: 201811
  3. SLOW?K [Concomitant]
     Active Substance: POTASSIUM CHLORIDE
     Dates: start: 20191202
  4. LENVATINIB [Suspect]
     Active Substance: LENVATINIB
     Route: 048
     Dates: start: 20191203, end: 20191208
  5. KETOPROFEN. [Concomitant]
     Active Substance: KETOPROFEN
     Dates: start: 20191104
  6. PANTOPRAZOLE [Concomitant]
     Active Substance: PANTOPRAZOLE
     Dates: start: 20191126
  7. NORTRIPTYLINE [Concomitant]
     Active Substance: NORTRIPTYLINE
     Dates: start: 201901
  8. PREDNISONE. [Concomitant]
     Active Substance: PREDNISONE
     Dates: start: 20191128, end: 20191130
  9. PEMBROLIZUMAB. [Suspect]
     Active Substance: PEMBROLIZUMAB
     Indication: TRIPLE NEGATIVE BREAST CANCER
     Route: 041
     Dates: start: 20191112, end: 20191112
  10. LENVATINIB [Suspect]
     Active Substance: LENVATINIB
     Indication: TRIPLE NEGATIVE BREAST CANCER
     Route: 048
     Dates: start: 20191112, end: 20191125
  11. ESTRADIOL. [Concomitant]
     Active Substance: ESTRADIOL
     Dates: start: 201401
  12. SENOKOT [Concomitant]
     Active Substance: SENNOSIDES
     Dates: start: 201701
  13. PANTOLOC [Concomitant]
     Active Substance: PANTOPRAZOLE SODIUM
     Dates: start: 20191126
  14. PREDNISONE. [Concomitant]
     Active Substance: PREDNISONE
     Dates: start: 20191126, end: 20191127
  15. PEMBROLIZUMAB. [Suspect]
     Active Substance: PEMBROLIZUMAB
     Route: 041
     Dates: start: 20200204
  16. PANTOPRAZOLE [Concomitant]
     Active Substance: PANTOPRAZOLE
     Dates: start: 20191104, end: 20191125
  17. HYDROMORPH CONTIN [Concomitant]
     Active Substance: HYDROMORPHONE
     Dates: start: 20191114
  18. PREDNISONE. [Concomitant]
     Active Substance: PREDNISONE
     Dates: start: 20191201, end: 20191201
  19. HYDROMORPHONE [Concomitant]
     Active Substance: HYDROMORPHONE
     Dates: start: 20191004

REACTIONS (1)
  - Diarrhoea [Recovered/Resolved]

NARRATIVE: CASE EVENT DATE: 20191209
